FAERS Safety Report 9402052 (Version 2)
Quarter: 2013Q3

REPORT INFORMATION
  Report Type: Spontaneous
  Country: FR (occurrence: FR)
  Receive Date: 20130716
  Receipt Date: 20130719
  Transmission Date: 20140515
  Serious: Yes (Hospitalization, Other)
  Sender: FDA-Public Use
  Company Number: PHHY2013FR074589

PATIENT
  Age: 30 Year
  Sex: Female

DRUGS (6)
  1. RITALINE [Suspect]
     Indication: HYPERSOMNIA
     Dosage: 60 MG (40MG AND 20 MG), QD
     Dates: start: 2008, end: 201304
  2. RITALINE [Suspect]
     Indication: OFF LABEL USE
     Dosage: 60 MG (40MG AND 20 MG), QD
     Dates: start: 201306
  3. AMLOR [Suspect]
     Dosage: UNK UKN, UNK
     Dates: end: 201306
  4. MODIODAL [Suspect]
     Indication: HYPERSOMNIA
     Dosage: UNK UKN, UNK
     Dates: start: 2010
  5. ANGIOTENSIN CONVERTING ENZYME BLOCKERS [Concomitant]
     Dosage: UNK UKN, UNK
  6. CORTICOSTEROID NOS [Concomitant]
     Dosage: UNK UKN, UNK
     Dates: end: 201306

REACTIONS (3)
  - Oedema peripheral [Recovered/Resolved]
  - Asthenia [Unknown]
  - Headache [Unknown]
